FAERS Safety Report 9325537 (Version 1)
Quarter: 2013Q2

REPORT INFORMATION
  Report Type: Spontaneous
  Country: US (occurrence: None)
  Receive Date: 20130531
  Receipt Date: 20130531
  Transmission Date: 20140414
  Serious: Yes (Hospitalization)
  Sender: FDA-Public Use
  Company Number: None

PATIENT
  Age: 86 Year
  Sex: Female
  Weight: 58 kg

DRUGS (6)
  1. JANUVIA [Suspect]
     Indication: TYPE 2 DIABETES MELLITUS
     Dosage: 25 MG DAILY BY MOUTH
     Route: 048
     Dates: start: 20130501, end: 20130505
  2. ASPIRIN [Concomitant]
  3. METFORMIN [Concomitant]
  4. METOPROLOL [Concomitant]
  5. QUINAPRIL [Concomitant]
  6. SIMVASTATIN [Concomitant]

REACTIONS (1)
  - Pancreatitis [None]
